FAERS Safety Report 7354708-9 (Version None)
Quarter: 2011Q1

REPORT INFORMATION
  Report Type: 
  Country: None (occurrence: None)
  Receive Date: 20110316
  Receipt Date: 20110307
  Transmission Date: 20110831
  Serious: Yes (Other)
  Sender: FDA-Public Use
  Company Number: NL-AMGEN-NLDSP2011013712

PATIENT
  Age: 57 Year
  Sex: Female

DRUGS (9)
  1. ASCAL                              /00002702/ [Concomitant]
     Dosage: UNK
  2. SILVER SULFADIAZINE [Concomitant]
     Dosage: UNK
  3. ENBREL [Suspect]
     Indication: PSORIATIC ARTHROPATHY
     Dosage: 50 MG, WEEKLY
     Dates: start: 20101216
  4. ICE [Concomitant]
     Dosage: UNK
  5. FLIXONASE                          /00972202/ [Concomitant]
     Dosage: UNK
  6. FLUVASTATIN [Concomitant]
     Dosage: UNK
  7. ENBREL [Suspect]
     Indication: RHEUMATOID ARTHRITIS
  8. AZATHIOPRINE [Concomitant]
     Dosage: UNK
  9. NEXIUM [Concomitant]
     Dosage: UNK

REACTIONS (3)
  - PSORIASIS [None]
  - DRUG INEFFECTIVE [None]
  - RHEUMATOID ARTHRITIS [None]
